FAERS Safety Report 17060334 (Version 2)
Quarter: 2019Q4

REPORT INFORMATION
  Report Type: Spontaneous
  Country: JP (occurrence: JP)
  Receive Date: 20191121
  Receipt Date: 20191209
  Transmission Date: 20200122
  Serious: Yes (Other)
  Sender: FDA-Public Use
  Company Number: JP-ELI_LILLY_AND_COMPANY-JP201911008581

PATIENT
  Age: 65 Year
  Sex: Male
  Weight: 52 kg

DRUGS (18)
  1. ZALUTIA [Concomitant]
     Active Substance: TADALAFIL
     Indication: PRODUCT USED FOR UNKNOWN INDICATION
     Dosage: 5 MG, DAILY
     Route: 048
  2. TAKEPRON [Concomitant]
     Active Substance: LANSOPRAZOLE
     Indication: PRODUCT USED FOR UNKNOWN INDICATION
     Dosage: 30 MG, DAILY
     Route: 048
  3. FOIPAN [Concomitant]
     Active Substance: CAMOSTAT MESYLATE
     Indication: PRODUCT USED FOR UNKNOWN INDICATION
     Dosage: 100 MG, UNK
     Route: 048
  4. LASIX [Concomitant]
     Active Substance: FUROSEMIDE
     Indication: OEDEMA
     Dosage: 20 MG, UNK
     Route: 048
  5. ERBITUX [Suspect]
     Active Substance: CETUXIMAB
     Dosage: 250 MG/M2, WEEKLY (1/W)
     Route: 041
     Dates: start: 201512, end: 20160301
  6. ULCERLMIN [Concomitant]
     Active Substance: SUCRALFATE
     Indication: PRODUCT USED FOR UNKNOWN INDICATION
     Dosage: 1 DOSAGE FORM, UNK
     Route: 048
  7. BISOLVON [Concomitant]
     Active Substance: BROMHEXINE HYDROCHLORIDE
     Indication: PRODUCT USED FOR UNKNOWN INDICATION
     Dosage: 4 MG, UNK
     Route: 048
  8. CDDP [Suspect]
     Active Substance: CISPLATIN
     Dosage: UNK, UNKNOWN
     Route: 065
     Dates: start: 20160120
  9. MAGNESIUM OXIDE. [Concomitant]
     Active Substance: MAGNESIUM OXIDE
     Indication: PRODUCT USED FOR UNKNOWN INDICATION
     Dosage: 500 MG, UNK
     Route: 048
  10. 5-FU [FLUOROURACIL] [Suspect]
     Active Substance: FLUOROURACIL
     Indication: LARYNGEAL CANCER RECURRENT
     Dosage: 1000 MG/M2, OTHER
     Route: 041
     Dates: start: 20151222, end: 20160301
  11. CDDP [Suspect]
     Active Substance: CISPLATIN
     Indication: LARYNGEAL CANCER RECURRENT
     Dosage: 100 MG/M2, OTHER
     Route: 041
     Dates: start: 20151222, end: 20160301
  12. AMLODIPINE [Concomitant]
     Active Substance: AMLODIPINE BESYLATE
     Indication: PRODUCT USED FOR UNKNOWN INDICATION
     Dosage: 5 MG, UNK
     Route: 048
  13. ONEALFA [Concomitant]
     Active Substance: ALFACALCIDOL
     Indication: PRODUCT USED FOR UNKNOWN INDICATION
     Dosage: 2 UG, DAILY
     Route: 048
  14. PRIMPERAN [Concomitant]
     Active Substance: METOCLOPRAMIDE HYDROCHLORIDE
     Indication: PRODUCT USED FOR UNKNOWN INDICATION
     Dosage: 5 MG, UNK
     Route: 048
  15. ERBITUX [Suspect]
     Active Substance: CETUXIMAB
     Indication: LARYNGEAL CANCER RECURRENT
     Dosage: 400 MG/M2, UNKNOWN
     Route: 041
     Dates: start: 20151222, end: 20151222
  16. CDDP [Suspect]
     Active Substance: CISPLATIN
     Dosage: UNK, UNKNOWN
     Route: 065
     Dates: start: 20160210
  17. THYRADIN [Concomitant]
     Active Substance: LEVOTHYROXINE
     Indication: PRODUCT USED FOR UNKNOWN INDICATION
     Dosage: 100 UG, DAILY
     Route: 048
  18. THYRADIN [Concomitant]
     Active Substance: LEVOTHYROXINE
     Dosage: 25 UG, DAILY
     Route: 048

REACTIONS (2)
  - Bone marrow failure [Recovered/Resolved]
  - Neutrophil count decreased [Recovered/Resolved]
